FAERS Safety Report 4360053-6 (Version None)
Quarter: 2004Q2

REPORT INFORMATION
  Report Type: 
  Country: None (occurrence: None)
  Receive Date: 20040513
  Receipt Date: 20040427
  Transmission Date: 20050107
  Serious: Yes (Other)
  Sender: FDA-Public Use
  Company Number: 10054505-04A30BG-1

PATIENT
  Age: 63 Year
  Sex: Female

DRUGS (2)
  1. DEXTROSE 5% [Suspect]
     Dates: start: 20040413, end: 20040413
  2. CARBOPLATIN [Concomitant]

REACTIONS (6)
  - COLD SWEAT [None]
  - HYPERHIDROSIS [None]
  - HYPOTENSION [None]
  - INFUSION RELATED REACTION [None]
  - PARAESTHESIA [None]
  - TACHYCARDIA [None]
